FAERS Safety Report 6863359-1 (Version None)
Quarter: 2010Q3

REPORT INFORMATION
  Report Type: 
  Country: None (occurrence: None)
  Receive Date: 20100721
  Receipt Date: 20100709
  Transmission Date: 20110219
  Serious: Yes (Hospitalization)
  Sender: FDA-Public Use
  Company Number: FR-ELI_LILLY_AND_COMPANY-FR201007002201

PATIENT
  Sex: Male
  Weight: 98 kg

DRUGS (1)
  1. SOMATROPIN [Suspect]
     Indication: GROWTH HORMONE DEFICIENCY
     Dosage: 0.6 MG, DAILY (1/D)
     Dates: start: 20050501, end: 20080101

REACTIONS (1)
  - PITUITARY TUMOUR BENIGN [None]
